FAERS Safety Report 16564862 (Version 1)
Quarter: 2019Q3

REPORT INFORMATION
  Report Type: Spontaneous
  Country: US (occurrence: US)
  Receive Date: 20190530
  Receipt Date: 20190530
  Transmission Date: 20191004
  Serious: No
  Sender: FDA-Public Use
  Company Number: None

PATIENT
  Age: 57 Year
  Sex: Female

DRUGS (2)
  1. NAFCILLIN SODIUM. [Suspect]
     Active Substance: NAFCILLIN SODIUM
     Indication: INTERVERTEBRAL DISC DISORDER
     Route: 042
     Dates: start: 20190426, end: 20190521
  2. NAFCILLIN SODIUM. [Suspect]
     Active Substance: NAFCILLIN SODIUM
     Indication: INFECTION
     Route: 042
     Dates: start: 20190426, end: 20190521

REACTIONS (1)
  - Eosinophil count increased [None]

NARRATIVE: CASE EVENT DATE: 201905
